FAERS Safety Report 12750308 (Version 2)
Quarter: 2016Q4

REPORT INFORMATION
  Report Type: Spontaneous
  Country: NO (occurrence: NO)
  Receive Date: 20160916
  Receipt Date: 20161021
  Transmission Date: 20170207
  Serious: Yes (Hospitalization, Other)
  Sender: FDA-Public Use
  Company Number: NO-PFIZER INC-2016416246

PATIENT
  Age: 57 Year
  Sex: Male

DRUGS (5)
  1. CISPLATIN. [Suspect]
     Active Substance: CISPLATIN
     Indication: ADENOCARCINOMA
     Dosage: THREE COURSES
     Route: 042
     Dates: start: 20130330, end: 20130627
  2. VINORELBINE [Suspect]
     Active Substance: VINORELBINE\VINORELBINE TARTRATE
     Indication: ADENOCARCINOMA
     Dosage: THREE COURSES
     Dates: start: 20130330, end: 20130627
  3. VINORELBINE [Suspect]
     Active Substance: VINORELBINE\VINORELBINE TARTRATE
     Dosage: FOUR COURSES. REDUCTION TO 75 % DOSAGE FROM 2A
     Dates: start: 20140410, end: 20140701
  4. CARBOPLATIN. [Suspect]
     Active Substance: CARBOPLATIN
     Dosage: 75% DOSE REDUCTION FROM 2A
     Route: 042
     Dates: end: 20140624
  5. CARBOPLATIN. [Suspect]
     Active Substance: CARBOPLATIN
     Indication: ADENOCARCINOMA
     Dosage: 2 COURSES
     Route: 042
     Dates: start: 20140410

REACTIONS (5)
  - Radiation pneumonitis [Unknown]
  - Infection [Unknown]
  - Disease progression [Unknown]
  - Adenocarcinoma [Unknown]
  - Neutropenia [Unknown]

NARRATIVE: CASE EVENT DATE: 201307
